FAERS Safety Report 24743382 (Version 1)
Quarter: 2024Q4

REPORT INFORMATION
  Report Type: Spontaneous
  Country: VN (occurrence: VN)
  Receive Date: 20241217
  Receipt Date: 20241217
  Transmission Date: 20250115
  Serious: Yes (Death, Other)
  Sender: PFIZER
  Company Number: VN-PFIZER INC-PV202400162761

PATIENT
  Age: 70 Year
  Sex: Male

DRUGS (9)
  1. TYGACIL [Suspect]
     Active Substance: TIGECYCLINE
     Indication: Strongyloidiasis
     Dosage: 50 MG
  2. MEROPENEM [Suspect]
     Active Substance: MEROPENEM
     Indication: Strongyloidiasis
     Dosage: 1 G
  3. IVERMECTIN [Suspect]
     Active Substance: IVERMECTIN
     Indication: Strongyloidiasis
     Dosage: 6 MG
  4. ALBENDAZOLE [Suspect]
     Active Substance: ALBENDAZOLE
     Indication: Strongyloidiasis
     Dosage: 400 MG
  5. RITUXIMAB [Concomitant]
     Active Substance: RITUXIMAB
     Indication: Non-Hodgkin^s lymphoma
     Dosage: 1400 MG, EVERY 3 WEEKS
  6. CYCLOPHOSPHAMIDE [Concomitant]
     Active Substance: CYCLOPHOSPHAMIDE
     Indication: Non-Hodgkin^s lymphoma
     Dosage: 500 MG, EVERY 3 WEEKS
  7. EPIRUBICIN HYDROCHLORIDE [Concomitant]
     Active Substance: EPIRUBICIN HYDROCHLORIDE
     Indication: Non-Hodgkin^s lymphoma
     Dosage: 50 MG, EVERY 3 WEEKS
  8. VINCRISTINE SULFATE [Concomitant]
     Active Substance: VINCRISTINE SULFATE
     Indication: Non-Hodgkin^s lymphoma
     Dosage: 2 MG, EVERY 3 WEEKS
  9. METHYLPREDNISOLONE [Concomitant]
     Active Substance: METHYLPREDNISOLONE
     Indication: Non-Hodgkin^s lymphoma
     Dosage: 40 MG, EVERY 3 WEEKS

REACTIONS (3)
  - Sepsis [Fatal]
  - Drug ineffective for unapproved indication [Fatal]
  - Off label use [Unknown]
